FAERS Safety Report 20085993 (Version 2)
Quarter: 2021Q4

REPORT INFORMATION
  Report Type: Spontaneous
  Country: NL (occurrence: NL)
  Receive Date: 20211118
  Receipt Date: 20211130
  Transmission Date: 20220303
  Serious: Yes (Hospitalization)
  Sender: FDA-Public Use
  Company Number: None

PATIENT
  Age: 56 Year
  Sex: Female
  Weight: 59 kg

DRUGS (3)
  1. AMBRISENTAN [Suspect]
     Active Substance: AMBRISENTAN
     Indication: Pulmonary hypertension
     Dosage: 5 MILLIGRAM DAILY; BRAND NAME NOT SPECIFIED
     Dates: start: 202012, end: 20210910
  2. SELEXIPAG/UPTRAVI [Concomitant]
     Dosage: 200 MCG (MICROGRAM),THERAPY START DATE :ASKU,THERAPY END DATE :ASKU
  3. LEVOTHYROXINE (NATRIUM)/ELTROXIN [Concomitant]
     Dosage: 200 MICROGRAM, 100 TABLET,THERAPY START DATE :ASKU,THERAPY END DATE :ASKU

REACTIONS (2)
  - Hepatic cirrhosis [Recovering/Resolving]
  - Therapeutic response unexpected [Unknown]

NARRATIVE: CASE EVENT DATE: 20210326
